FAERS Safety Report 21843602 (Version 1)
Quarter: 2023Q1

REPORT INFORMATION
  Report Type: Spontaneous
  Country: CA (occurrence: CA)
  Receive Date: 20230110
  Receipt Date: 20230110
  Transmission Date: 20230417
  Serious: Yes (Other)
  Sender: FDA-Public Use
  Company Number: CA-PFIZER INC-PV202300002676

PATIENT
  Age: 77 Year
  Sex: Female
  Weight: 71.6 kg

DRUGS (3)
  1. CARBOPLATIN [Suspect]
     Active Substance: CARBOPLATIN
     Dosage: UNK
  2. PACLITAXEL [Suspect]
     Active Substance: PACLITAXEL
     Dosage: UNK
  3. ZIRABEV [Concomitant]
     Active Substance: BEVACIZUMAB-BVZR
     Indication: Ovarian cancer stage III
     Dosage: 537 MG, Q3 WEEKS (7.5 MG/KG)

REACTIONS (11)
  - Ascites [Unknown]
  - Thrombosis [Unknown]
  - Neoplasm progression [Unknown]
  - Dyspnoea [Unknown]
  - Abdominal pain [Unknown]
  - Abdominal distension [Unknown]
  - Pleural effusion [Unknown]
  - Adnexa uteri mass [Unknown]
  - Constipation [Unknown]
  - Oedema peripheral [Unknown]
  - Blood pressure systolic increased [Unknown]

NARRATIVE: CASE EVENT DATE: 20220101
